FAERS Safety Report 24244499 (Version 1)
Quarter: 2024Q3

REPORT INFORMATION
  Report Type: Spontaneous
  Country: TH (occurrence: TH)
  Receive Date: 20240823
  Receipt Date: 20240823
  Transmission Date: 20241017
  Serious: Yes (Other)
  Sender: INCYTE
  Company Number: TH-002147023-NVSC2024TH166188

PATIENT

DRUGS (5)
  1. RUXOLITINIB [Suspect]
     Active Substance: RUXOLITINIB
     Indication: Product used for unknown indication
     Dosage: 5 MG, BID, (2X2)
     Route: 065
     Dates: start: 20211116
  2. RUXOLITINIB [Suspect]
     Active Substance: RUXOLITINIB
     Dosage: 5 MG, BID, (AFTER MEAL)
     Route: 048
     Dates: start: 20230123
  3. RUXOLITINIB [Suspect]
     Active Substance: RUXOLITINIB
     Dosage: 5 MG, BID, (1 TABLET TWICE  DAILY ALTERNATE  WITH 1 TABLET  ONCE DAILY AFTER MEAL)
     Route: 048
     Dates: start: 20230725
  4. PREDNISOLONE [Concomitant]
     Active Substance: PREDNISOLONE
     Indication: Product used for unknown indication
     Dosage: 1.5 MG, QD, (1.5X1 PO PC)
     Route: 048
  5. MYCOPHENOLATE MOFETIL [Concomitant]
     Active Substance: MYCOPHENOLATE MOFETIL
     Indication: Product used for unknown indication
     Dosage: 250 MG, QD, (1X1 PO PC)
     Route: 048

REACTIONS (17)
  - Cytomegalovirus colitis [Unknown]
  - Cytomegalovirus viraemia [Recovering/Resolving]
  - Vascular device infection [Recovering/Resolving]
  - Illness [Unknown]
  - Clostridium difficile colitis [Recovering/Resolving]
  - Clostridium difficile infection [Unknown]
  - Cryptitis [Unknown]
  - Mucosal inflammation [Unknown]
  - Diarrhoea haemorrhagic [Unknown]
  - Acute graft versus host disease [Unknown]
  - Upper respiratory tract infection [Unknown]
  - Proctitis [Unknown]
  - Abdominal pain [Unknown]
  - Infection [Recovering/Resolving]
  - Chronic gastritis [Unknown]
  - Ulcer [Unknown]
  - Excessive granulation tissue [Unknown]

NARRATIVE: CASE EVENT DATE: 20211203
